FAERS Safety Report 9491037 (Version 1)
Quarter: 2013Q3

REPORT INFORMATION
  Report Type: Spontaneous
  Country: US (occurrence: US)
  Receive Date: 20130830
  Receipt Date: 20130830
  Transmission Date: 20140515
  Serious: No
  Sender: FDA-Public Use
  Company Number: US-PFIZER INC-2013248835

PATIENT
  Sex: Female

DRUGS (2)
  1. PRISTIQ [Suspect]
     Indication: DEPRESSION
     Dosage: 50 MG, 1X/DAY
  2. PRISTIQ [Suspect]
     Indication: ANXIETY
     Dosage: 25 MG (BY CUTTING 50MG INTO HALF), 1X/DAY

REACTIONS (3)
  - Anorgasmia [Unknown]
  - Off label use [Unknown]
  - Wrong technique in drug usage process [Unknown]
